FAERS Safety Report 4890892-4 (Version None)
Quarter: 2005Q4

REPORT INFORMATION
  Report Type: 
  Country: None (occurrence: None)
  Receive Date: 20051220
  Receipt Date: 20051114
  Transmission Date: 20060501
  Serious: Yes (Other)
  Sender: FDA-Public Use
  Company Number: 424993

PATIENT
  Sex: Male

DRUGS (1)
  1. BONIVA [Suspect]
     Dates: start: 20051113

REACTIONS (3)
  - ARTHRALGIA [None]
  - MYALGIA [None]
  - PYREXIA [None]
